FAERS Safety Report 12698741 (Version 2)
Quarter: 2016Q4

REPORT INFORMATION
  Report Type: Spontaneous
  Country: AU (occurrence: AU)
  Receive Date: 20160830
  Receipt Date: 20161003
  Transmission Date: 20170207
  Serious: Yes (Other)
  Sender: FDA-Public Use
  Company Number: AU-NOVOPROD-506927

PATIENT
  Age: 52 Year
  Sex: Female
  Weight: 92 kg

DRUGS (4)
  1. SAXENDA [Suspect]
     Active Substance: LIRAGLUTIDE
     Indication: WEIGHT CONTROL
     Dosage: 2.4 MG, QD
     Route: 058
     Dates: start: 20160721, end: 20160822
  2. GASTROSTOP [Concomitant]
     Indication: DIARRHOEA
     Dosage: 4 - 6 TABLETS DAILY PRN
     Route: 048
  3. THYROXINE [Concomitant]
     Active Substance: LEVOTHYROXINE
     Indication: HYPOTHYROIDISM
     Dosage: 100 ?G
     Route: 048
     Dates: start: 201601
  4. SELENIUM [Concomitant]
     Active Substance: SELENIUM
     Indication: HYPOTHYROIDISM
     Dosage: 100 ?G
     Route: 048
     Dates: start: 201601

REACTIONS (2)
  - Parathyroid tumour benign [Not Recovered/Not Resolved]
  - Benign neoplasm of thyroid gland [Not Recovered/Not Resolved]

NARRATIVE: CASE EVENT DATE: 20160805
